FAERS Safety Report 18243735 (Version 1)
Quarter: 2020Q3

REPORT INFORMATION
  Report Type: Spontaneous
  Country: CA (occurrence: CA)
  Receive Date: 20200908
  Receipt Date: 20200908
  Transmission Date: 20201103
  Serious: Yes (Other)
  Sender: FDA-Public Use
  Company Number: CA-PFIZER INC-2020344370

PATIENT
  Age: 71 Year
  Sex: Male

DRUGS (8)
  1. LORAZEPAM. [Suspect]
     Active Substance: LORAZEPAM
     Indication: SLEEP DISORDER
     Dosage: 5 MG
     Route: 065
  2. MORPHINE [Concomitant]
     Active Substance: MORPHINE
     Dosage: UNK
  3. ROBAXACET [Concomitant]
     Active Substance: ACETAMINOPHEN\METHOCARBAMOL
     Dosage: UNK
  4. ALEVE [Concomitant]
     Active Substance: NAPROXEN SODIUM
     Dosage: UNK
  5. TYLENOL [Concomitant]
     Active Substance: ACETAMINOPHEN
     Dosage: UNK
  6. CANNABIS [Interacting]
     Active Substance: CANNABIS SATIVA SUBSP. INDICA TOP
     Indication: SLEEP DISORDER
     Dosage: 1 DF, 1X/DAY
     Route: 048
  7. CANNABIS [Interacting]
     Active Substance: CANNABIS SATIVA SUBSP. INDICA TOP
     Indication: PAIN
  8. ADVIL [IBUPROFEN] [Concomitant]
     Active Substance: IBUPROFEN
     Dosage: UNK

REACTIONS (13)
  - Influenza like illness [Unknown]
  - Drug interaction [Unknown]
  - Inguinal hernia [Unknown]
  - Retching [Unknown]
  - Anal incontinence [Unknown]
  - Contusion [Unknown]
  - Loss of consciousness [Unknown]
  - Nasal congestion [Unknown]
  - Dry mouth [Unknown]
  - Muscular weakness [Unknown]
  - Spondylolisthesis [Unknown]
  - Cold sweat [Unknown]
  - Fall [Unknown]
